APPROVED DRUG PRODUCT: CELEBREX
Active Ingredient: CELECOXIB
Strength: 400MG
Dosage Form/Route: CAPSULE;ORAL
Application: N020998 | Product #003 | TE Code: AB
Applicant: UPJOHN US 2 LLC
Approved: Aug 29, 2002 | RLD: Yes | RS: Yes | Type: RX